FAERS Safety Report 5782690-4 (Version None)
Quarter: 2008Q2

REPORT INFORMATION
  Report Type: 
  Country: None (occurrence: None)
  Receive Date: 20080619
  Receipt Date: 20080619
  Transmission Date: 20081010
  Serious: Yes (Death)
  Sender: FDA-Public Use
  Company Number: None

PATIENT
  Sex: Male
  Weight: 83 kg

DRUGS (10)
  1. REMICADE [Suspect]
     Indication: COLITIS ULCERATIVE
     Dosage: 900 MG 8 WEEKLY IV DRIP
     Route: 041
     Dates: start: 20070701, end: 20080326
  2. PREDNISONE TAB [Suspect]
     Indication: COLITIS ULCERATIVE
     Dosage: 40 MG DAILY PO
     Route: 048
     Dates: start: 20080401, end: 20080527
  3. PREDNISONE [Concomitant]
  4. ASACOL [Concomitant]
  5. AMLODIPINE BESYLATE [Concomitant]
  6. ENTOCORT EC [Concomitant]
  7. METOPROLOL SUCCINATE EXTENDED RELEASE [Concomitant]
  8. REMICADE [Concomitant]
  9. AMBIEN CR [Concomitant]
  10. CALTRATE [Concomitant]

REACTIONS (4)
  - BLADDER CANCER [None]
  - HYPOTENSION [None]
  - SEPSIS [None]
  - VENTRICULAR ARRHYTHMIA [None]
